FAERS Safety Report 15100820 (Version 1)
Quarter: 2018Q3

REPORT INFORMATION
  Report Type: Report from Study
  Country: US (occurrence: US)
  Receive Date: 20180703
  Receipt Date: 20180703
  Transmission Date: 20181010
  Serious: Yes (Other)
  Sender: FDA-Public Use
  Company Number: US-ROCHE-2148164

PATIENT

DRUGS (3)
  1. LENALIDOMIDE [Suspect]
     Active Substance: LENALIDOMIDE
     Indication: B-CELL LYMPHOMA
     Route: 048
     Dates: start: 20180212
  2. VENETOCLAX. [Suspect]
     Active Substance: VENETOCLAX
     Indication: B-CELL LYMPHOMA
     Dosage: VENETOCLAX PO ON DAYS 1?28 AS PER PROTOCOL
     Route: 048
     Dates: start: 20180212
  3. OBINUTUZUMAB. [Suspect]
     Active Substance: OBINUTUZUMAB
     Indication: B-CELL LYMPHOMA
     Dosage: OBINUTUZUMAB IV ON DAYS 1, 8, AND 15 OF COURSE 1, AND DAY 1 OF COURSES 2?6. TREATMENT REPEATS EVERY
     Route: 042
     Dates: start: 20180212

REACTIONS (4)
  - Hyperhidrosis [Not Recovered/Not Resolved]
  - Neutrophil count decreased [Recovered/Resolved]
  - Lymphocyte count decreased [Recovered/Resolved]
  - White blood cell count decreased [Recovered/Resolved]

NARRATIVE: CASE EVENT DATE: 20180305
